FAERS Safety Report 8344001-X (Version None)
Quarter: 2012Q2

REPORT INFORMATION
  Report Type: 
  Country: None (occurrence: None)
  Receive Date: 20120503
  Receipt Date: 20120425
  Transmission Date: 20120825
  Serious: Yes (Other)
  Sender: FDA-Public Use
  Company Number: DSA_56336_2012

PATIENT
  Sex: Female

DRUGS (1)
  1. ELIDEL [Suspect]
     Indication: ECZEMA
     Dosage: (DF TOPICAL)
     Route: 061
     Dates: start: 20110101

REACTIONS (1)
  - NON-HODGKIN'S LYMPHOMA RECURRENT [None]
